FAERS Safety Report 9097172 (Version 4)
Quarter: 2014Q1

REPORT INFORMATION
  Report Type: Report from Study
  Country: CA (occurrence: CA)
  Receive Date: 20130212
  Receipt Date: 20140106
  Transmission Date: 20141002
  Serious: Yes (Death, Hospitalization)
  Sender: FDA-Public Use
  Company Number: PHHY2013CA013685

PATIENT
  Age: 51 Year
  Sex: Male

DRUGS (1)
  1. CLOZARIL [Suspect]
     Dosage: UNK UKN, UNK
     Dates: start: 20071122, end: 20130212

REACTIONS (5)
  - Completed suicide [Fatal]
  - Respiratory failure [Unknown]
  - Influenza like illness [Unknown]
  - Pyrexia [Unknown]
  - Antipsychotic drug level increased [Unknown]
